FAERS Safety Report 5863326-0 (Version None)
Quarter: 2008Q3

REPORT INFORMATION
  Report Type: 
  Country: None (occurrence: None)
  Receive Date: 20080828
  Receipt Date: 20080818
  Transmission Date: 20090109
  Serious: Yes (Hospitalization)
  Sender: FDA-Public Use
  Company Number: PHHY2008JP14505

PATIENT
  Sex: Male

DRUGS (7)
  1. EXJADE [Suspect]
     Indication: IRON OVERLOAD
     Dosage: 1000 MG
     Route: 048
     Dates: start: 20080626, end: 20080716
  2. HYDREA [Concomitant]
     Indication: IRON OVERLOAD
     Dosage: 1000 M, UNK
     Route: 048
  3. ALOSITOL [Concomitant]
     Indication: IRON OVERLOAD
     Dosage: 200 MG, UNK
     Route: 048
  4. OMEPRAZOLE [Concomitant]
     Indication: CARDIAC FAILURE
     Dosage: 20 MG, UNK
     Route: 048
  5. LANIRAPID [Concomitant]
     Indication: CARDIAC FAILURE
     Dosage: 0.1 MG, UNK
     Route: 048
     Dates: start: 20080128
  6. LASIX [Concomitant]
     Indication: CARDIAC FAILURE
     Dosage: 20 MG, UNK
     Route: 048
     Dates: start: 20080128
  7. ALDACTONE [Concomitant]
     Indication: CARDIAC FAILURE
     Dosage: 12.5 MG, UNK
     Route: 048
     Dates: start: 20080128

REACTIONS (3)
  - PARAESTHESIA ORAL [None]
  - PNEUMONIA [None]
  - RASH [None]
